FAERS Safety Report 11788600 (Version 1)
Quarter: 2015Q4

REPORT INFORMATION
  Report Type: Spontaneous
  Country: ZA (occurrence: None)
  Receive Date: 20151130
  Receipt Date: 20151130
  Transmission Date: 20160305
  Serious: Yes (Disabling)
  Sender: FDA-Public Use
  Company Number: None

PATIENT
  Age: 35 Year
  Sex: Male
  Weight: 62 kg

DRUGS (2)
  1. LEVOFLOXACIN 500MG WINTHROP [Suspect]
     Active Substance: LEVOFLOXACIN
     Indication: POSTOPERATIVE FEVER
     Dosage: 8 PILLS
     Route: 048
     Dates: start: 20151113, end: 20151117
  2. OMEGA 3 [Concomitant]
     Active Substance: OMEGA-3 FATTY ACIDS

REACTIONS (3)
  - Joint crepitation [None]
  - Tendon pain [None]
  - Quality of life decreased [None]

NARRATIVE: CASE EVENT DATE: 20151113
